FAERS Safety Report 5715958-8 (Version None)
Quarter: 2008Q2

REPORT INFORMATION
  Report Type: 
  Country: None (occurrence: None)
  Receive Date: 20080423
  Receipt Date: 20080423
  Transmission Date: 20081010
  Serious: Yes (Other)
  Sender: FDA-Public Use
  Company Number: None

PATIENT
  Age: 21 Year
  Sex: Female
  Weight: 83.0083 kg

DRUGS (1)
  1. VIVITROL [Suspect]
     Dosage: ONCE A MONTH

REACTIONS (5)
  - HYPERHIDROSIS [None]
  - INFLUENZA [None]
  - LOSS OF CONSCIOUSNESS [None]
  - PALLOR [None]
  - VOMITING [None]
